FAERS Safety Report 17871295 (Version 1)
Quarter: 2020Q2

REPORT INFORMATION
  Report Type: Spontaneous
  Country: US (occurrence: US)
  Receive Date: 20200608
  Receipt Date: 20200608
  Transmission Date: 20200714
  Serious: Yes (Other)
  Sender: FDA-Public Use
  Company Number: US-SA-2020SA144269

PATIENT

DRUGS (1)
  1. ZANTAC 75 [Suspect]
     Active Substance: RANITIDINE HYDROCHLORIDE
     Dosage: UNK
     Dates: start: 2012, end: 2020

REACTIONS (5)
  - Anxiety [Unknown]
  - Carcinogenicity [Unknown]
  - Pain [Unknown]
  - Plasma cell myeloma [Unknown]
  - Injury [Unknown]

NARRATIVE: CASE EVENT DATE: 2018
